FAERS Safety Report 9064481 (Version 1)
Quarter: 2013Q1

REPORT INFORMATION
  Report Type: Spontaneous
  Country: US (occurrence: US)
  Receive Date: 20130214
  Receipt Date: 20130214
  Transmission Date: 20140127
  Serious: No
  Sender: FDA-Public Use
  Company Number: US-009507513-1210USA012866

PATIENT
  Age: 21 Year
  Sex: Female
  Weight: 70.3 kg

DRUGS (1)
  1. NEXPLANON [Suspect]
     Indication: CONTRACEPTION
     Dosage: EVERY 3 YEARS
     Route: 059
     Dates: start: 20120412

REACTIONS (9)
  - Fatigue [Unknown]
  - Hypoaesthesia [Unknown]
  - Amenorrhoea [Unknown]
  - Headache [Unknown]
  - Injection site pruritus [Unknown]
  - Injection site urticaria [Unknown]
  - Depression [Unknown]
  - Weight increased [Unknown]
  - Asthenia [Unknown]
